FAERS Safety Report 9674851 (Version 2)
Quarter: 2013Q4

REPORT INFORMATION
  Report Type: Report from Study
  Country: TR (occurrence: TR)
  Receive Date: 20131107
  Receipt Date: 20131112
  Transmission Date: 20140711
  Serious: Yes (Hospitalization)
  Sender: FDA-Public Use
  Company Number: PHHY2013TR124272

PATIENT
  Age: 55 Year
  Sex: Female

DRUGS (1)
  1. SANDOSTATIN LAR [Suspect]
     Indication: ACROMEGALY
     Dosage: 10 MG, ONCE EVERY 04 WEEKS
     Route: 030
     Dates: start: 20100126

REACTIONS (3)
  - Abscess intestinal [Unknown]
  - Abdominal pain [Unknown]
  - Abdominal distension [Unknown]
